FAERS Safety Report 10110956 (Version 2)
Quarter: 2014Q2

REPORT INFORMATION
  Report Type: Report from Study
  Country: US (occurrence: US)
  Receive Date: 20140425
  Receipt Date: 20140425
  Transmission Date: 20141212
  Serious: Yes (Hospitalization, Disabling, Other)
  Sender: FDA-Public Use
  Company Number: US-JNJFOC-20140205050

PATIENT
  Age: 82 Year
  Sex: Male
  Weight: 60.78 kg

DRUGS (14)
  1. REMICADE [Suspect]
     Indication: RHEUMATOID ARTHRITIS
     Route: 042
  2. NAMENDA [Concomitant]
     Route: 048
  3. NORVASC [Concomitant]
     Route: 048
  4. IBUPROFEN [Concomitant]
     Route: 048
  5. XANAX [Concomitant]
     Route: 048
  6. CELEXA [Concomitant]
     Route: 065
  7. DULCOLAX [Concomitant]
     Route: 054
  8. RESTORIL [Concomitant]
     Indication: INSOMNIA
     Route: 048
  9. ASPIRIN [Concomitant]
     Route: 048
  10. HALDOL [Concomitant]
     Route: 048
  11. OMEPRAZOLE [Concomitant]
     Route: 048
  12. VITAMIN D3 [Concomitant]
     Route: 048
  13. TYLENOL EXTRA STRENGTH [Concomitant]
     Indication: PYREXIA
     Route: 048
  14. TYLENOL EXTRA STRENGTH [Concomitant]
     Indication: PAIN
     Route: 048

REACTIONS (5)
  - Impaired healing [Unknown]
  - Localised infection [Unknown]
  - Staphylococcal osteomyelitis [Unknown]
  - Blister [Unknown]
  - Pain in extremity [Unknown]
